FAERS Safety Report 15392243 (Version 1)
Quarter: 2018Q4

REPORT INFORMATION
  Report Type: Other
  Country: US (occurrence: US)
  Receive Date: 20180917
  Receipt Date: 20180917
  Transmission Date: 20190204
  Serious: No
  Sender: FDA-Public Use
  Company Number: US-MIKART, INC.-2054992

PATIENT
  Sex: Female

DRUGS (1)
  1. HYDROCODONE BITARTRATE AND ACETAMINOPHEN [Suspect]
     Active Substance: ACETAMINOPHEN\HYDROCODONE BITARTRATE
     Route: 048

REACTIONS (1)
  - Drug tolerance [Unknown]
